FAERS Safety Report 8611661-5 (Version None)
Quarter: 2012Q3

REPORT INFORMATION
  Report Type: 
  Country: None (occurrence: None)
  Receive Date: 20120822
  Receipt Date: 20120815
  Transmission Date: 20120928
  Serious: No
  Sender: FDA-Public Use
  Company Number: US-PFIZER INC-2012201046

PATIENT
  Age: 53 Year
  Sex: Female
  Weight: 70.295 kg

DRUGS (5)
  1. EFFEXOR XR [Suspect]
     Indication: ANXIETY
  2. ASCORBIC ACID [Concomitant]
     Indication: ROUTINE HEALTH MAINTENANCE
     Dosage: 1000 MG, DAILY
  3. EFFEXOR XR [Suspect]
     Indication: DEPRESSION
     Dosage: UNK
     Route: 048
  4. FISH OIL [Concomitant]
     Indication: CARDIAC DISORDER
     Dosage: UNK, DAILY
     Dates: start: 20120101
  5. FISH OIL [Concomitant]
     Indication: BLOOD CHOLESTEROL ABNORMAL

REACTIONS (14)
  - HYPERHIDROSIS [None]
  - DEPRESSION [None]
  - EMOTIONAL DISORDER [None]
  - IRRITABILITY [None]
  - FEELING ABNORMAL [None]
  - DRUG WITHDRAWAL SYNDROME [None]
  - NAUSEA [None]
  - COLD SWEAT [None]
  - DIZZINESS [None]
  - IMPATIENCE [None]
  - STRESS [None]
  - ANXIETY [None]
  - SENSORY DISTURBANCE [None]
  - ANGER [None]
